FAERS Safety Report 23949784 (Version 2)
Quarter: 2024Q2

REPORT INFORMATION
  Report Type: Spontaneous
  Country: CN (occurrence: CN)
  Receive Date: 20240607
  Receipt Date: 20240611
  Transmission Date: 20240716
  Serious: Yes (Other)
  Sender: FDA-Public Use
  Company Number: CN-009507513-2406CHN000587

PATIENT
  Age: 10 Year
  Sex: Male
  Weight: 36.8 kg

DRUGS (3)
  1. NOXAFIL [Suspect]
     Active Substance: POSACONAZOLE
     Indication: Anti-infective therapy
     Dosage: 200 MG, QD
     Route: 048
     Dates: start: 20240508, end: 20240529
  2. CEFOPERAZONE SODIUM\SULBACTAM SODIUM [Suspect]
     Active Substance: CEFOPERAZONE SODIUM\SULBACTAM SODIUM
     Indication: Agranulocytosis
     Dosage: 0.5 G, TID
     Route: 041
     Dates: start: 20240508, end: 20240529
  3. SULFAMETHOXAZOLE [Suspect]
     Active Substance: SULFAMETHOXAZOLE
     Indication: Antifungal prophylaxis
     Dosage: 0.36 G, BID
     Route: 048
     Dates: start: 20240505, end: 20240507

REACTIONS (4)
  - Liver injury [Recovering/Resolving]
  - Product use in unapproved indication [Unknown]
  - Product administered to patient of inappropriate age [Unknown]
  - Incorrect dosage administered [Unknown]

NARRATIVE: CASE EVENT DATE: 20240508
